FAERS Safety Report 23578555 (Version 4)
Quarter: 2024Q1

REPORT INFORMATION
  Report Type: Other
  Country: IT (occurrence: IT)
  Receive Date: 20240229
  Receipt Date: 20240318
  Transmission Date: 20240409
  Serious: Yes (Hospitalization, Other)
  Sender: FDA-Public Use
  Company Number: None

PATIENT
  Age: 32 Year
  Sex: Male
  Weight: 107 kg

DRUGS (8)
  1. IBUPROFEN [Suspect]
     Active Substance: IBUPROFEN
     Indication: Pain in extremity
     Dosage: 600 MILLIGRAM/DAY, FOR TWO YEARS
     Route: 065
     Dates: start: 2014, end: 2015
  2. IBUPROFEN [Suspect]
     Active Substance: IBUPROFEN
     Indication: Back pain
  3. ENANTONE LP [Suspect]
     Active Substance: LEUPROLIDE ACETATE
     Indication: Supplementation therapy
     Dosage: 500 MILLIGRAM/DAY
     Route: 048
  4. ENANTONE LP [Suspect]
     Active Substance: LEUPROLIDE ACETATE
     Dosage: 500 MILLIGRAM/DAY, (INJECTION (PFT) )
     Route: 065
  5. STANOZOLOL [Suspect]
     Active Substance: STANOZOLOL
     Indication: Supplementation therapy
     Dosage: 2 MILLIGRAM/KILOGRAM/DAY
     Route: 048
  6. STANOZOLOL [Suspect]
     Active Substance: STANOZOLOL
     Dosage: UNK, DAILY
     Route: 048
  7. AMINO ACIDS, SOURCE UNSPECIFIED [Suspect]
     Active Substance: AMINO ACIDS, SOURCE UNSPECIFIED
     Indication: Supplementation therapy
     Dosage: 1 G/DAY
     Route: 065
  8. CREATINE [Suspect]
     Active Substance: CREATINE
     Indication: Supplementation therapy
     Dosage: UNK (7 DAYS/MONTH)
     Route: 065

REACTIONS (3)
  - Drug abuse [Recovered/Resolved]
  - Focal segmental glomerulosclerosis [Recovered/Resolved]
  - Chronic kidney disease [Recovered/Resolved]
